FAERS Safety Report 11076279 (Version 1)
Quarter: 2015Q2

REPORT INFORMATION
  Report Type: Spontaneous
  Country: US (occurrence: US)
  Receive Date: 20150429
  Receipt Date: 20150429
  Transmission Date: 20150821
  Serious: Yes (Other)
  Sender: FDA-Public Use
  Company Number: US-ASTRAZENECA-2015SE38290

PATIENT
  Age: 55 Year
  Sex: Male
  Weight: 82.6 kg

DRUGS (6)
  1. TOPROL XL [Suspect]
     Active Substance: METOPROLOL SUCCINATE
     Indication: HYPERTENSION
     Route: 048
     Dates: start: 20150416
  2. BRILINTA [Suspect]
     Active Substance: TICAGRELOR
     Route: 048
     Dates: start: 20150114, end: 20150410
  3. BRILINTA [Suspect]
     Active Substance: TICAGRELOR
     Route: 048
     Dates: start: 201504
  4. TOPROL XL [Suspect]
     Active Substance: METOPROLOL SUCCINATE
     Indication: VENTRICULAR EXTRASYSTOLES
     Route: 048
     Dates: start: 20150416
  5. TOPROL XL [Suspect]
     Active Substance: METOPROLOL SUCCINATE
     Indication: DIZZINESS
     Route: 048
     Dates: start: 20150416
  6. CERTALINE [Concomitant]
     Indication: ANXIETY
     Route: 065
     Dates: start: 20150417

REACTIONS (9)
  - Abdominal discomfort [Unknown]
  - Weight decreased [Unknown]
  - Anxiety [Unknown]
  - Paraesthesia [Unknown]
  - Product use issue [Unknown]
  - Insomnia [Unknown]
  - Hypoaesthesia [Unknown]
  - Dizziness [Unknown]
  - Drug dose omission [Unknown]

NARRATIVE: CASE EVENT DATE: 2015
